FAERS Safety Report 19733072 (Version 1)
Quarter: 2021Q3

REPORT INFORMATION
  Report Type: Spontaneous
  Country: US (occurrence: US)
  Receive Date: 20210822
  Receipt Date: 20210822
  Transmission Date: 20211014
  Serious: No
  Sender: FDA-Public Use
  Company Number: None

PATIENT
  Sex: Male

DRUGS (10)
  1. CLOBETASOL CREAM [Concomitant]
     Active Substance: CLOBETASOL
  2. COLACE [Concomitant]
     Active Substance: DOCUSATE SODIUM
  3. LUPRON [Concomitant]
     Active Substance: LEUPROLIDE ACETATE
  4. XGEVA [Concomitant]
     Active Substance: DENOSUMAB
  5. PRECOCET [Concomitant]
  6. PREDNISONE. [Concomitant]
     Active Substance: PREDNISONE
  7. ABIRATERONE 250 MG TAB [Suspect]
     Active Substance: ABIRATERONE ACETATE
     Indication: PROSTATE CANCER
     Route: 048
  8. VITAMIN B12 [Concomitant]
     Active Substance: CYANOCOBALAMIN
  9. VITAMIN B6 [Concomitant]
     Active Substance: PYRIDOXINE HYDROCHLORIDE
  10. CALCIUM [Concomitant]
     Active Substance: CALCIUM

REACTIONS (1)
  - Drug ineffective [None]
